FAERS Safety Report 13673398 (Version 1)
Quarter: 2017Q2

REPORT INFORMATION
  Report Type: Spontaneous
  Country: GB (occurrence: GB)
  Receive Date: 20170621
  Receipt Date: 20170621
  Transmission Date: 20170830
  Serious: Yes (Hospitalization, Disabling)
  Sender: FDA-Public Use
  Company Number: GB-CIPLA LTD.-2017GB10530

PATIENT

DRUGS (3)
  1. ESCITALOPRAM [Suspect]
     Active Substance: ESCITALOPRAM OXALATE
     Indication: DEPRESSION
     Dosage: 10 MG, UNK
     Route: 048
     Dates: start: 20170525, end: 20170525
  2. OMEGA-3 ACIDS [Concomitant]
     Active Substance: OMEGA-3 FATTY ACIDS
     Dosage: UNK
     Route: 065
  3. MULTIVITAMIN [Concomitant]
     Active Substance: VITAMINS
     Dosage: UNK, VEGAN
     Route: 065

REACTIONS (8)
  - Speech disorder [Unknown]
  - Migraine [Unknown]
  - Nausea [Unknown]
  - Mydriasis [Unknown]
  - Muscle contractions involuntary [Not Recovered/Not Resolved]
  - Inappropriate affect [Unknown]
  - Dizziness [Unknown]
  - Malaise [Unknown]

NARRATIVE: CASE EVENT DATE: 20170525
